FAERS Safety Report 7213889-8 (Version None)
Quarter: 2011Q1

REPORT INFORMATION
  Report Type: 
  Country: None (occurrence: None)
  Receive Date: 20110106
  Receipt Date: 20101229
  Transmission Date: 20110831
  Serious: Yes (Death)
  Sender: FDA-Public Use
  Company Number: US-ABBOTT-10P-163-0693910-00

PATIENT
  Sex: Male
  Weight: 70.37 kg

DRUGS (2)
  1. HUMIRA [Suspect]
     Indication: PSORIASIS
     Route: 058
     Dates: start: 20080331, end: 20100401
  2. VERDESO [Concomitant]
     Indication: PSORIASIS
     Dosage: FOAM
     Route: 061
     Dates: start: 20091001, end: 20091001

REACTIONS (4)
  - MYOCARDIAL INFARCTION [None]
  - CORONARY ARTERY OCCLUSION [None]
  - SUDDEN DEATH [None]
  - MALAISE [None]
